FAERS Safety Report 22151867 (Version 1)
Quarter: 2023Q1

REPORT INFORMATION
  Report Type: Report from Study
  Country: US (occurrence: US)
  Receive Date: 20230329
  Receipt Date: 20230329
  Transmission Date: 20230418
  Serious: Yes (Other)
  Sender: FDA-Public Use
  Company Number: US-UCBSA-2021048360

PATIENT
  Age: 66 Year
  Sex: Female
  Weight: 160 kg

DRUGS (3)
  1. LEVETIRACETAM [Suspect]
     Active Substance: LEVETIRACETAM
     Indication: Seizure
     Dosage: XR 750 MILLIGRAM, 2X/DAY (BID)
  2. GABAPENTIN [Concomitant]
     Active Substance: GABAPENTIN
     Indication: Seizure
     Dosage: UNK
  3. CINSULIN [Concomitant]
     Indication: Diabetes mellitus
     Dosage: UNK

REACTIONS (11)
  - Seizure [Unknown]
  - Diabetes mellitus [Not Recovered/Not Resolved]
  - Cerebral disorder [Recovered/Resolved]
  - Hyperhidrosis [Not Recovered/Not Resolved]
  - Headache [Not Recovered/Not Resolved]
  - Movement disorder [Recovered/Resolved]
  - Malaise [Not Recovered/Not Resolved]
  - Nausea [Unknown]
  - Dizziness [Unknown]
  - Asthenia [Unknown]
  - Product physical issue [Unknown]

NARRATIVE: CASE EVENT DATE: 20210701
